FAERS Safety Report 9347011 (Version 1)
Quarter: 2013Q2

REPORT INFORMATION
  Report Type: Spontaneous
  Country: US (occurrence: US)
  Receive Date: 20130613
  Receipt Date: 20130613
  Transmission Date: 20140414
  Serious: Yes (Hospitalization)
  Sender: FDA-Public Use
  Company Number: US-GLAXOSMITHKLINE-A0797790A

PATIENT
  Age: 60 Year
  Sex: Male
  Weight: 75.9 kg

DRUGS (1)
  1. AVANDIA [Suspect]
     Indication: DIABETES MELLITUS
     Dosage: 4MG AS DIRECTED
     Route: 048

REACTIONS (1)
  - Cerebrovascular accident [Unknown]
